FAERS Safety Report 5832979-5 (Version None)
Quarter: 2008Q3

REPORT INFORMATION
  Report Type: 
  Country: None (occurrence: None)
  Receive Date: 20080804
  Receipt Date: 20080724
  Transmission Date: 20090109
  Serious: Yes (Other)
  Sender: FDA-Public Use
  Company Number: NL-GENENTECH-263224

PATIENT
  Sex: Female
  Weight: 69.1 kg

DRUGS (2)
  1. RANIBIZUMAB [Suspect]
     Indication: MACULAR DEGENERATION
     Dosage: 0.5 MG, UNK
     Route: 031
     Dates: start: 20071023
  2. VISUDYNE [Suspect]
     Indication: MACULAR DEGENERATION
     Dosage: 6 MG, UNK
     Route: 042
     Dates: start: 20071023

REACTIONS (3)
  - MACULAR PSEUDOHOLE [None]
  - RETINAL CYST [None]
  - RETINAL DEGENERATION [None]
